FAERS Safety Report 7833311-8 (Version None)
Quarter: 2011Q4

REPORT INFORMATION
  Report Type: 
  Country: None (occurrence: None)
  Receive Date: 20111024
  Receipt Date: 20111018
  Transmission Date: 20120403
  Serious: Yes (Hospitalization)
  Sender: FDA-Public Use
  Company Number: US-AMGEN-USACT2011041287

PATIENT
  Age: 66 Year
  Sex: Female

DRUGS (12)
  1. LANTUS [Concomitant]
  2. NORCO [Concomitant]
  3. LASIX [Concomitant]
  4. DIGOXIN [Concomitant]
  5. MS CONTIN [Concomitant]
  6. ASPIRIN [Concomitant]
  7. ALLOPURINOL [Concomitant]
  8. PLAVIX [Concomitant]
  9. GABAPENTIN [Concomitant]
  10. BLINDED DARBEPOETIN ALFA [Suspect]
     Indication: CARDIAC FAILURE CHRONIC
     Dates: start: 20070201
  11. BLINDED PLACEBO [Suspect]
     Indication: CARDIAC FAILURE CHRONIC
     Dates: start: 20070201
  12. NOVOLOG [Concomitant]

REACTIONS (16)
  - URINE KETONE BODY PRESENT [None]
  - GLUCOSE URINE PRESENT [None]
  - BLOOD URINE PRESENT [None]
  - CARDIOMEGALY [None]
  - MENTAL STATUS CHANGES [None]
  - DYSARTHRIA [None]
  - FALL [None]
  - MIOSIS [None]
  - GOUT [None]
  - RESPIRATORY DISTRESS [None]
  - STAPHYLOCOCCAL INFECTION [None]
  - CONFUSIONAL STATE [None]
  - COUGH [None]
  - OSTEOARTHRITIS [None]
  - JOINT INJURY [None]
  - BUNDLE BRANCH BLOCK LEFT [None]
